FAERS Safety Report 7301230-1 (Version None)
Quarter: 2011Q1

REPORT INFORMATION
  Report Type: 
  Country: None (occurrence: None)
  Receive Date: 20110112
  Receipt Date: 20090406
  Transmission Date: 20110831
  Serious: Yes (Other)
  Sender: FDA-Public Use
  Company Number: THYM-1001003

PATIENT
  Age: 56 Year
  Sex: Male

DRUGS (8)
  1. THYMOGLOBULIN [Suspect]
     Indication: RENAL TRANSPLANT
     Dosage: 125 MG, QD, INTRAVENOUS
     Route: 042
     Dates: start: 20090326, end: 20090328
  2. THYMOGLOBULIN [Suspect]
  3. MYCELEX [Concomitant]
  4. VALCYTE [Concomitant]
  5. CELLCEPT [Concomitant]
  6. BACTRIM [Concomitant]
  7. PROGRAF [Concomitant]
  8. PREDNISONE TAB [Concomitant]

REACTIONS (2)
  - KIDNEY TRANSPLANT REJECTION [None]
  - THERAPEUTIC RESPONSE DECREASED [None]
